FAERS Safety Report 9831057 (Version 1)
Quarter: 2014Q1

REPORT INFORMATION
  Report Type: Spontaneous
  Country: US (occurrence: US)
  Receive Date: 20140120
  Receipt Date: 20140120
  Transmission Date: 20141002
  Serious: Yes (Other)
  Sender: FDA-Public Use
  Company Number: US-ROCHE-1332861

PATIENT
  Age: 69 Year
  Sex: Male

DRUGS (7)
  1. CAPECITABINE [Suspect]
     Indication: SKIN CANCER
     Route: 065
  2. AZATHIOPRINE [Suspect]
     Indication: SKIN CANCER
     Route: 065
  3. ASPIRIN [Concomitant]
  4. ENALAPRIL [Concomitant]
  5. PREDNISONE [Concomitant]
  6. SIMVASTATIN [Concomitant]
  7. TAMSULOSIN [Concomitant]

REACTIONS (1)
  - Myelodysplastic syndrome [Unknown]
